FAERS Safety Report 11642724 (Version 3)
Quarter: 2015Q4

REPORT INFORMATION
  Report Type: Report from Study
  Country: JP (occurrence: JP)
  Receive Date: 20151020
  Receipt Date: 20151102
  Transmission Date: 20160304
  Serious: Yes (Hospitalization, Other)
  Sender: FDA-Public Use
  Company Number: JP-ROCHE-1644917

PATIENT
  Age: 51 Year
  Sex: Male
  Weight: 62.3 kg

DRUGS (12)
  1. ZOPICLONE TABLETS [Concomitant]
     Active Substance: ZOPICLONE
     Indication: INSOMNIA
     Route: 065
     Dates: start: 20150913
  2. EMEND [Concomitant]
     Active Substance: APREPITANT
     Route: 065
     Dates: start: 20150908, end: 20150910
  3. GRANISETRON [Concomitant]
     Active Substance: GRANISETRON
     Route: 065
     Dates: start: 20150908
  4. MICARDIS [Concomitant]
     Active Substance: TELMISARTAN
     Indication: HYPERTENSION
     Route: 065
     Dates: start: 20150926
  5. POLARAMINE [Concomitant]
     Active Substance: DEXCHLORPHENIRAMINE MALEATE
     Route: 065
     Dates: start: 20150908, end: 20150908
  6. CROTAMITON [Concomitant]
     Active Substance: CROTAMITON
     Indication: PRURITUS
     Route: 065
     Dates: start: 20150911
  7. CAPECITABINE. [Suspect]
     Active Substance: CAPECITABINE
     Indication: ADENOCARCINOMA GASTRIC
     Dosage: DATE OF MOST RECENT DOSE PRIOR TO SAE: 15/SEP/2015.
     Route: 065
     Dates: start: 20150908
  8. TERPERAN [Concomitant]
     Active Substance: METOCLOPRAMIDE HYDROCHLORIDE
     Indication: HICCUPS
     Route: 065
     Dates: start: 20150910
  9. DEXART [Concomitant]
     Active Substance: DEXAMETHASONE SODIUM PHOSPHATE
     Route: 065
     Dates: start: 20150908, end: 20150910
  10. CISPLATIN. [Suspect]
     Active Substance: CISPLATIN
     Indication: ADENOCARCINOMA GASTRIC
     Dosage: DATE OF MOST RECENT DOSE PRIOR TO SAE: 15/SEP/2015.
     Route: 065
     Dates: start: 20150908
  11. NEXIUM [Concomitant]
     Active Substance: ESOMEPRAZOLE MAGNESIUM
     Route: 065
     Dates: start: 20150827
  12. EURAX HC [Concomitant]
     Indication: PRURITUS
     Route: 065
     Dates: start: 20150924

REACTIONS (2)
  - Acute kidney injury [Not Recovered/Not Resolved]
  - Hyperkalaemia [Recovered/Resolved]

NARRATIVE: CASE EVENT DATE: 20150924
